FAERS Safety Report 8049235-X (Version None)
Quarter: 2012Q1

REPORT INFORMATION
  Report Type: 
  Country: None (occurrence: None)
  Receive Date: 20120117
  Receipt Date: 20120113
  Transmission Date: 20120608
  Serious: Yes (Hospitalization, Other)
  Sender: FDA-Public Use
  Company Number: GB-ROCHE-798906

PATIENT
  Sex: Female
  Weight: 72 kg

DRUGS (3)
  1. COPEGUS [Suspect]
     Indication: HEPATITIS C
     Dosage: DOSE: 400 MG MORNING AND 600 MG EVENING.
     Route: 048
     Dates: start: 20110704, end: 20110823
  2. PEGINTERFERON ALFA-2A [Suspect]
     Indication: HEPATITIS C
     Dosage: FORM: SUBCUTANEOUS INJECTION
     Route: 058
     Dates: start: 20110704, end: 20110823
  3. BLINDED TMC435 (NS3/4A PROTEASE INHIBITOR) [Suspect]
     Indication: HEPATITIS C
     Route: 048
     Dates: start: 20110704, end: 20110823

REACTIONS (2)
  - MAJOR DEPRESSION [None]
  - SYNCOPE [None]
